FAERS Safety Report 8538790-9 (Version None)
Quarter: 2012Q3

REPORT INFORMATION
  Report Type: 
  Country: None (occurrence: None)
  Receive Date: 20120716
  Receipt Date: 20120702
  Transmission Date: 20120928
  Serious: Yes (Hospitalization)
  Sender: FDA-Public Use
  Company Number: DSA_58274_2012

PATIENT
  Age: 25 Year
  Sex: Male

DRUGS (7)
  1. CIPROFLOXACIN [Suspect]
     Indication: NECROTISING FASCIITIS
     Dosage: (500 MG TID ORAL)
     Route: 048
     Dates: start: 20120608, end: 20120610
  2. TRAMADOL HYDROCHLORIDE [Suspect]
     Indication: PROCEDURAL PAIN
     Dosage: (200 MG QD ORAL)
     Route: 048
     Dates: start: 20120524, end: 20120610
  3. AZACTAM [Concomitant]
  4. IDARAC [Concomitant]
  5. FLAGYL [Suspect]
     Indication: NECROTISING FASCIITIS
     Dosage: (500 MG TID ORAL)
     Route: 048
     Dates: start: 20120608, end: 20120610
  6. TAZOBACTAM [Concomitant]
  7. CLINDAMYCIN HYDROCHLORIDE [Concomitant]

REACTIONS (2)
  - DIARRHOEA [None]
  - VOMITING [None]
